FAERS Safety Report 13448450 (Version 2)
Quarter: 2017Q2

REPORT INFORMATION
  Report Type: Spontaneous
  Country: DE (occurrence: DE)
  Receive Date: 20170417
  Receipt Date: 20170519
  Transmission Date: 20170830
  Serious: Yes (Other)
  Sender: FDA-Public Use
  Company Number: DE-BAXALTA-2017BLT002964

PATIENT
  Age: 15 Year
  Sex: Male
  Weight: 43 kg

DRUGS (1)
  1. HYQVIA [Suspect]
     Active Substance: HUMAN IMMUNOGLOBULIN G\HYALURONIDASE RECOMBINANT HUMAN
     Indication: IMMUNODEFICIENCY
     Dosage: UNK
     Route: 058
     Dates: start: 20170312, end: 20170312

REACTIONS (4)
  - Infusion site erythema [Not Recovered/Not Resolved]
  - Staphylococcal infection [Recovered/Resolved]
  - Abscess [Not Recovered/Not Resolved]
  - Infusion site swelling [Not Recovered/Not Resolved]

NARRATIVE: CASE EVENT DATE: 201703
